FAERS Safety Report 8282470-4 (Version None)
Quarter: 2012Q2

REPORT INFORMATION
  Report Type: 
  Country: None (occurrence: None)
  Receive Date: 20120413
  Receipt Date: 20120410
  Transmission Date: 20120825
  Serious: Yes (Other)
  Sender: FDA-Public Use
  Company Number: BR-PFIZER INC-2012090449

PATIENT
  Sex: Male

DRUGS (3)
  1. LITHIUM CARBONATE [Concomitant]
     Dosage: UNK
  2. ZOLOFT [Suspect]
     Dosage: 50 MG, 1X/DAY (IN THE EVENING)
     Route: 048
  3. ZOLOFT [Suspect]
     Dosage: 50 MG, 2X/DAY (IN THE MORNING AND IN THE AFTERNOON)
     Route: 048

REACTIONS (3)
  - ANXIETY [None]
  - DEPRESSION [None]
  - GENERALISED ANXIETY DISORDER [None]
